FAERS Safety Report 4877858-5 (Version None)
Quarter: 2006Q1

REPORT INFORMATION
  Report Type: 
  Country: None (occurrence: None)
  Receive Date: 20060109
  Receipt Date: 20051227
  Transmission Date: 20060701
  Serious: Yes (Hospitalization)
  Sender: FDA-Public Use
  Company Number: HQWYE158228DEC05

PATIENT
  Age: 52 Year
  Sex: Female

DRUGS (7)
  1. ADVIL [Suspect]
     Dosage: 1200 MG DAILY, ORAL
     Route: 048
     Dates: end: 20051011
  2. ATHYMIL                   (MIANSERIN HYDROCHLORIDE, ) [Suspect]
     Dates: start: 20050910, end: 20051011
  3. OXACILLIN [Suspect]
  4. EFFERALGAN (PARACETAMOL, ) [Suspect]
     Dates: end: 20051011
  5. ENDOTELON (HERBAL EXTRACTS NOS/VITIS VINIFERA, ) [Suspect]
     Dates: end: 20051011
  6. NOCTRAN 10 [Suspect]
     Dosage: 10 MG/SEVERAL YEARS
     Dates: end: 20051011
  7. AUGMENTIN '125' [Concomitant]

REACTIONS (1)
  - HEPATITIS CHOLESTATIC [None]
